FAERS Safety Report 20676166 (Version 1)
Quarter: 2022Q2

REPORT INFORMATION
  Report Type: Spontaneous
  Country: US (occurrence: US)
  Receive Date: 20220405
  Receipt Date: 20220405
  Transmission Date: 20220721
  Serious: No
  Sender: FDA-Public Use
  Company Number: US-PFIZER INC-202101310625

PATIENT
  Age: 57 Year
  Sex: Female

DRUGS (1)
  1. IBRANCE [Suspect]
     Active Substance: PALBOCICLIB
     Indication: Anaemia
     Dosage: 125 MG
     Dates: start: 20210619

REACTIONS (3)
  - Off label use [Unknown]
  - Alopecia [Unknown]
  - Fatigue [Unknown]
